FAERS Safety Report 10632521 (Version 1)
Quarter: 2014Q4

REPORT INFORMATION
  Report Type: Spontaneous
  Country: US (occurrence: None)
  Receive Date: 20141203
  Receipt Date: 20141203
  Transmission Date: 20150529
  Serious: No
  Sender: FDA-Public Use
  Company Number: None

PATIENT

DRUGS (1)
  1. SILVER NITRATE. [Suspect]
     Active Substance: SILVER NITRATE

REACTIONS (8)
  - Product lot number issue [None]
  - Product barcode issue [None]
  - Product identification number issue [None]
  - Device misuse [None]
  - Wrong technique in drug usage process [None]
  - Application site burn [None]
  - Product expiration date issue [None]
  - Product packaging issue [None]
